FAERS Safety Report 9004742 (Version 1)
Quarter: 2013Q1

REPORT INFORMATION
  Report Type: Spontaneous
  Country: US (occurrence: None)
  Receive Date: 20130104
  Receipt Date: 20130104
  Transmission Date: 20140127
  Serious: Yes (Disabling)
  Sender: FDA-Public Use
  Company Number: None

PATIENT
  Sex: Female
  Weight: 79.5 kg

DRUGS (2)
  1. SYMBICORT [Suspect]
     Indication: CHRONIC OBSTRUCTIVE PULMONARY DISEASE
     Dosage: 2 INHALATIONS TWICE DAILY BY MOUTH
     Route: 055
     Dates: start: 20090814, end: 20090816
  2. SYMBICORT [Suspect]
     Indication: ASTHMA
     Dosage: 2 INHALATIONS TWICE DAILY BY MOUTH
     Route: 055
     Dates: start: 20090814, end: 20090816

REACTIONS (5)
  - Confusional state [None]
  - Dysarthria [None]
  - Dysphemia [None]
  - Memory impairment [None]
  - Memory impairment [None]
